FAERS Safety Report 4714058-3 (Version None)
Quarter: 2005Q3

REPORT INFORMATION
  Report Type: 
  Country: None (occurrence: None)
  Receive Date: 20050713
  Receipt Date: 20050713
  Transmission Date: 20060218
  Serious: Yes (Hospitalization)
  Sender: FDA-Public Use
  Company Number: None

PATIENT
  Sex: Male

DRUGS (16)
  1. TERAZOSIN 10 MG [Suspect]
     Indication: HYPERTENSION
     Dosage: 10 MG DAILY ORAL
     Route: 048
  2. DOCUSATE [Concomitant]
  3. EPO [Concomitant]
  4. FERROUS SULFATE TAB [Concomitant]
  5. FINASTERIDE [Concomitant]
  6. FUROSEMIDE [Concomitant]
  7. GEMFIBROZIL [Concomitant]
  8. HYDROCODONE BITARTRATE + ACETAMINOPHEN [Concomitant]
  9. IMIQUIMOD [Concomitant]
  10. ISOSORBIDE MONONITRATE [Concomitant]
  11. LISINOPRIL [Concomitant]
  12. METOPROLOL [Concomitant]
  13. OMEPRAZOLE [Concomitant]
  14. SPIRONOLACTONE [Concomitant]
  15. WARFARIN SODIUM [Concomitant]
  16. ASPIRIN [Concomitant]

REACTIONS (1)
  - HYPOTENSION [None]
